FAERS Safety Report 4914264-9 (Version None)
Quarter: 2006Q1

REPORT INFORMATION
  Report Type: 
  Country: None (occurrence: None)
  Receive Date: 20060113
  Receipt Date: 20051107
  Transmission Date: 20060701
  Serious: No
  Sender: FDA-Public Use
  Company Number: 2005SP003870

PATIENT
  Age: 70 Year
  Sex: Male
  Weight: 97.5234 kg

DRUGS (2)
  1. LUNESTA [Suspect]
     Dosage: 3 MG; 1X; ORAL
     Route: 048
     Dates: start: 20051024, end: 20051024
  2. LUNESTA [Suspect]
     Dosage: 3 MG; 1X; ORAL
     Route: 048
     Dates: start: 20051031, end: 20051031

REACTIONS (2)
  - DYSGEUSIA [None]
  - NAUSEA [None]
